FAERS Safety Report 12566371 (Version 1)
Quarter: 2016Q3

REPORT INFORMATION
  Report Type: Report from Study
  Country: CO (occurrence: CO)
  Receive Date: 20160718
  Receipt Date: 20160718
  Transmission Date: 20161109
  Serious: Yes (Death, Hospitalization)
  Sender: FDA-Public Use
  Company Number: CO-JNJFOC-20160713023

PATIENT
  Sex: Male

DRUGS (1)
  1. IMBRUVICA [Suspect]
     Active Substance: IBRUTINIB
     Indication: MANTLE CELL LYMPHOMA
     Route: 048
     Dates: start: 20160509, end: 20160523

REACTIONS (3)
  - Gastrointestinal haemorrhage [Fatal]
  - Pneumonia [Fatal]
  - Mantle cell lymphoma [Fatal]

NARRATIVE: CASE EVENT DATE: 20160523
